FAERS Safety Report 8894930 (Version 1)
Quarter: 2012Q4

REPORT INFORMATION
  Report Type: 
  Country: JM (occurrence: JM)
  Receive Date: 20121108
  Receipt Date: 20121108
  Transmission Date: 20130627
  Serious: Yes (Other)
  Sender: FDA-Public Use
  Company Number: PHHY2012JM101725

PATIENT
  Age: 46 Year
  Sex: Female

DRUGS (2)
  1. ZOMETA [Suspect]
     Dosage: UNK UKN, UNK
  2. EXEMESTANE [Suspect]
     Dosage: UNK UKN, UNK

REACTIONS (2)
  - Osteonecrosis of jaw [Unknown]
  - Hypoaesthesia [Unknown]
